FAERS Safety Report 20456185 (Version 1)
Quarter: 2022Q1

REPORT INFORMATION
  Report Type: Spontaneous
  Country: US (occurrence: None)
  Receive Date: 20220210
  Receipt Date: 20220210
  Transmission Date: 20220424
  Serious: Yes (Hospitalization, Other)
  Sender: FDA-Public Use
  Company Number: None

PATIENT
  Age: 39 Year
  Sex: Male
  Weight: 90 kg

DRUGS (2)
  1. VANCOMYCIN [Suspect]
     Active Substance: VANCOMYCIN
     Indication: Cellulitis
     Dosage: FREQUENCY : EVERY 8 HOURS;?
     Route: 042
     Dates: start: 20220205, end: 20220209
  2. VANCOMYCIN [Suspect]
     Active Substance: VANCOMYCIN
     Indication: Bursitis

REACTIONS (7)
  - Skin discolouration [None]
  - Penis disorder [None]
  - Skin fissures [None]
  - Genital haemorrhage [None]
  - Fear [None]
  - Panic disorder [None]
  - Feeling abnormal [None]

NARRATIVE: CASE EVENT DATE: 20220210
